FAERS Safety Report 8244466-8 (Version None)
Quarter: 2012Q1

REPORT INFORMATION
  Report Type: 
  Country: None (occurrence: None)
  Receive Date: 20120329
  Receipt Date: 20120322
  Transmission Date: 20120608
  Serious: Yes (Hospitalization, Other)
  Sender: FDA-Public Use
  Company Number: US-BAYER-2011-045442

PATIENT
  Age: 25 Year
  Sex: Female
  Weight: 113 kg

DRUGS (4)
  1. YASMIN [Suspect]
     Indication: ANTIANDROGEN THERAPY
     Dosage: UNK
     Dates: start: 20040701, end: 20050701
  2. NSAID'S [Concomitant]
     Dosage: UNK UNK, PRN
     Dates: start: 19990601
  3. YAZ [Suspect]
     Dosage: UNK
     Dates: start: 20040701, end: 20050701
  4. YASMIN [Suspect]
     Indication: AMENORRHOEA

REACTIONS (11)
  - INJURY [None]
  - GALLBLADDER DISORDER [None]
  - ANHEDONIA [None]
  - DEEP VEIN THROMBOSIS [None]
  - CEREBROVASCULAR ACCIDENT [None]
  - PAIN [None]
  - ANXIETY [None]
  - FEAR [None]
  - PULMONARY EMBOLISM [None]
  - MYOCARDIAL INFARCTION [None]
  - MENTAL DISORDER [None]
